FAERS Safety Report 5705304-8 (Version None)
Quarter: 2008Q2

REPORT INFORMATION
  Report Type: 
  Country: None (occurrence: None)
  Receive Date: 20080415
  Receipt Date: 20080402
  Transmission Date: 20081010
  Serious: Yes (Other)
  Sender: FDA-Public Use
  Company Number: DE-RANBAXY-2008RR-14205

PATIENT

DRUGS (4)
  1. ACICLOVIR RANBAXY 800 MG COMPRIME [Suspect]
  2. BUSULFAN [Concomitant]
  3. CYCLOPHOSPHAMIDE [Concomitant]
  4. ETOPOSIDE [Concomitant]

REACTIONS (3)
  - CONVULSION [None]
  - DRUG TOXICITY [None]
  - GRAFT VERSUS HOST DISEASE [None]
